FAERS Safety Report 7250357-1 (Version None)
Quarter: 2011Q1

REPORT INFORMATION
  Report Type: 
  Country: None (occurrence: None)
  Receive Date: 20110121
  Receipt Date: 20110121
  Transmission Date: 20110831
  Serious: No
  Sender: FDA-Public Use
  Company Number: None

PATIENT
  Age: 35 Year
  Sex: Female

DRUGS (4)
  1. FUROSEMIDE [Concomitant]
  2. LETAIRIS [Suspect]
     Indication: PULMONARY HYPERTENSION
     Dosage: 10MG DAILY ORALLY
     Route: 048
  3. WARFARIN SODIUM [Concomitant]
  4. KLOR-CON [Concomitant]

REACTIONS (2)
  - PREGNANCY [None]
  - DRUG EXPOSURE DURING PREGNANCY [None]
